FAERS Safety Report 22529207 (Version 1)
Quarter: 2023Q2

REPORT INFORMATION
  Report Type: Spontaneous
  Country: KR (occurrence: KR)
  Receive Date: 20230607
  Receipt Date: 20230607
  Transmission Date: 20230722
  Serious: Yes (Other)
  Sender: FDA-Public Use
  Company Number: KR-ORGANON-O2306KOR000998

PATIENT
  Age: 79 Year
  Sex: Female
  Weight: 61 kg

DRUGS (19)
  1. HYDROCHLOROTHIAZIDE\LOSARTAN POTASSIUM [Suspect]
     Active Substance: HYDROCHLOROTHIAZIDE\LOSARTAN POTASSIUM
     Indication: Essential hypertension
     Dosage: 1 DOSAGE FORM, QD (ONE FORMULATION, ONE DAY)
     Route: 048
     Dates: end: 20180712
  2. AMITRIPTYLINE HYDROCHLORIDE [Concomitant]
     Active Substance: AMITRIPTYLINE HYDROCHLORIDE
     Indication: Depression
     Dosage: 10 MILLIGRAM, QD (ONE DAY)
     Route: 048
  3. LORAZEPAM [Concomitant]
     Active Substance: LORAZEPAM
     Indication: Acute myeloid leukaemia
     Dosage: 1 MILLIGRAM, QD (ONE DAY) (FORMULATION REPORTED AS UNCOATED TABLET)
     Route: 048
  4. DIAZEPAM [Concomitant]
     Active Substance: DIAZEPAM
     Indication: Depression
     Dosage: 2 MILLIGRAM, QD (ONE DAY), (FORMULATION REPORTED AS UNCOATED TABLET)
     Route: 048
  5. CIMETIDINE [Concomitant]
     Active Substance: CIMETIDINE
     Indication: Prophylaxis
     Dosage: 200 MILLIGRAM, QD (ONE DAY)
     Route: 048
     Dates: end: 20180604
  6. MOSAPRIDE CITRATE [Concomitant]
     Active Substance: MOSAPRIDE CITRATE
     Indication: Prophylaxis
     Dosage: 5 MILLIGRAM, QD (ONE DAY)
     Route: 048
     Dates: end: 20180604
  7. MAGNESIUM HYDROXIDE [Concomitant]
     Active Substance: MAGNESIUM HYDROXIDE
     Indication: Prophylaxis
     Dosage: 500 MILLIGRAM, QD (ONE DAY), (FORMULATION REPORTED AS UNCOATED TABLET)
     Route: 048
     Dates: end: 20180604
  8. PITAVASTATIN CALCIUM [Concomitant]
     Active Substance: PITAVASTATIN CALCIUM
     Indication: Prophylaxis
     Dosage: 1 MILLIGRAM, QD (ONE DAY)
     Route: 048
     Dates: end: 20180701
  9. ATORVASTATIN CALCIUM [Concomitant]
     Active Substance: ATORVASTATIN CALCIUM
     Indication: Prophylaxis
     Dosage: 20 MILLIGRAM, QD (ONE DAY)
     Route: 048
  10. NICORANDIL [Concomitant]
     Active Substance: NICORANDIL
     Indication: Essential hypertension
     Dosage: 5 MILLIGRAM, (FORMULATION REPORTED AS UNCOATED TABLET)
     Route: 048
  11. SODIUM BICARBONATE [Concomitant]
     Active Substance: SODIUM BICARBONATE
     Indication: Prophylaxis
     Dosage: 10 GRAM, ROUTE REPORTED AS EXTERNAL USE
     Dates: start: 20180502
  12. ACETYLCYSTEINE [Concomitant]
     Active Substance: ACETYLCYSTEINE
     Indication: Upper respiratory tract infection
     Dosage: 200 MILLIGRAM, BID (0.5 DAY)
     Route: 048
     Dates: start: 20180503, end: 20180507
  13. CHLORPHENAMINE;DIHYDROCODEINE;GUAIFENESIN;METHYLEPHEDRINE [Concomitant]
     Indication: Upper respiratory tract infection
     Dosage: 1 FORMULATION, 0.33 DAY; FORMULATION: UNCOATED TABLET
     Route: 048
     Dates: start: 20180503, end: 20180507
  14. LACTULOSE [Concomitant]
     Active Substance: LACTULOSE
     Indication: Prophylaxis
     Dosage: 10 MILLILITER, TID (0.33 DAY) (FORMULATION REPORTED AS LIQUID SYRUP); CONCENTRATE SOLUTION
     Route: 048
     Dates: start: 20180507, end: 20180511
  15. CLOPIDOGREL BISULFATE [Concomitant]
     Active Substance: CLOPIDOGREL BISULFATE
     Indication: Prophylaxis
     Dosage: 75 MILLIGRAM, QD (ONE DAY)
     Route: 048
     Dates: end: 20180508
  16. DECITABINE [Concomitant]
     Active Substance: DECITABINE
     Indication: Acute myeloid leukaemia
     Dosage: 32 MILLIGRAM, QD (ONE DAY), ROUTE: VEIN; FORMULATION: LYOPHILIZED POWDER INJECTION FOR SOLUTION
     Route: 042
     Dates: start: 20180503, end: 20180507
  17. CHLORPHENIRAMINE MALEATE [Concomitant]
     Active Substance: CHLORPHENIRAMINE MALEATE
     Indication: Prophylaxis
     Dosage: 4 MILLIGRAM, ROUTE REPORTED AS VEIN; FORMULATION: SOLUTION INJECTION
     Route: 042
     Dates: start: 20180428, end: 20180428
  18. ACETAMINOPHEN\CODEINE\IBUPROFEN [Concomitant]
     Active Substance: ACETAMINOPHEN\CODEINE\IBUPROFEN
     Indication: Prophylaxis
     Dosage: 1 FORMULATION, 1 DAY; FORMULATION: HARD CAPSULE, POWDER
     Route: 048
     Dates: start: 20180424, end: 20180428
  19. ACETAMINOPHEN [Concomitant]
     Active Substance: ACETAMINOPHEN
     Indication: Infestation
     Dosage: 650 MILLIGRAM (FORMULATION REPORTED AS SLOW-RELEASE FILM-COATED TABLET)
     Route: 048
     Dates: start: 20180503, end: 20180505

REACTIONS (6)
  - Febrile neutropenia [Recovered/Resolved]
  - Nausea [Recovered/Resolved]
  - Petechiae [Recovered/Resolved]
  - Epistaxis [Recovered/Resolved]
  - Nausea [Recovering/Resolving]
  - Orthostatic hypotension [Recovered/Resolved]

NARRATIVE: CASE EVENT DATE: 20180510
